FAERS Safety Report 10217332 (Version 4)
Quarter: 2014Q4

REPORT INFORMATION
  Report Type: Report from Study
  Country: ES (occurrence: AU)
  Receive Date: 20140604
  Receipt Date: 20141223
  Transmission Date: 20150528
  Serious: Yes (Death)
  Sender: FDA-Public Use
  Company Number: AU-FRI-1000067786

PATIENT
  Age: 66 Year
  Sex: Male

DRUGS (19)
  1. PREDNISOLONE. [Concomitant]
     Active Substance: PREDNISOLONE
     Dosage: 50 MG
     Route: 048
     Dates: start: 20140508
  2. SALBUTAMOL [Concomitant]
     Active Substance: ALBUTEROL
     Dosage: 1 AS REQUIRED
     Route: 055
     Dates: start: 20140321
  3. ACLIDINIUM [Suspect]
     Active Substance: ACLIDINIUM BROMIDE
     Indication: CHRONIC OBSTRUCTIVE PULMONARY DISEASE
     Dosage: ONE PUFF BID
     Route: 055
     Dates: start: 20140321
  4. MAGNESIUM [Concomitant]
     Active Substance: MAGNESIUM
     Indication: VENTRICULAR TACHYCARDIA
     Dosage: 74.8 MG
     Route: 048
     Dates: start: 20140106
  5. MOXIFLOXACINA [Concomitant]
     Dosage: 400 MG
     Route: 048
     Dates: start: 20140507
  6. ATORVASTATIN [Concomitant]
     Active Substance: ATORVASTATIN
     Dosage: 40 MG
     Route: 048
     Dates: start: 20140314
  7. PRAZOSIN [Concomitant]
     Active Substance: PRAZOSIN
     Dosage: 2 MG
     Route: 048
     Dates: start: 20140321
  8. SERETIDE MDI [Concomitant]
     Active Substance: FLUTICASONE PROPIONATE\SALMETEROL XINAFOATE
     Dosage: 2 AS REQUIRED
     Route: 055
     Dates: start: 20140314
  9. CARVEDILOL. [Concomitant]
     Active Substance: CARVEDILOL
     Dosage: 50 MG
     Route: 048
     Dates: start: 20140321
  10. PERINDOPRIL [Concomitant]
     Active Substance: PERINDOPRIL
     Dosage: 10 MG
     Route: 048
     Dates: start: 20140314
  11. TRAMADOL HCL [Concomitant]
     Active Substance: TRAMADOL HYDROCHLORIDE
     Indication: CHEST PAIN
     Dosage: 1 AS REQUIRED
     Route: 048
     Dates: start: 20140508
  12. TRAMADOL HCL [Concomitant]
     Active Substance: TRAMADOL HYDROCHLORIDE
     Dosage: 200 MG
     Route: 048
     Dates: start: 20140508
  13. AMIODARONE [Concomitant]
     Active Substance: AMIODARONE
     Indication: VENTRICULAR TACHYCARDIA
     Dosage: 200 MG
     Route: 048
     Dates: start: 20140314
  14. AMLODIPINE [Concomitant]
     Active Substance: AMLODIPINE BESYLATE
     Dosage: 10 MG
     Route: 048
     Dates: start: 20140314
  15. NITROLINGUAL [Concomitant]
     Active Substance: NITROGLYCERIN
     Route: 060
     Dates: start: 20140314
  16. COPLAVIX [Concomitant]
     Active Substance: ASPIRIN\CLOPIDOGREL BISULFATE
     Dosage: 175 MG
     Route: 048
     Dates: start: 20140401
  17. FUROSEMIDE. [Concomitant]
     Active Substance: FUROSEMIDE
     Dosage: 40 MG
     Route: 048
     Dates: start: 20140314
  18. NICORANDIL [Concomitant]
     Active Substance: NICORANDIL
     Dosage: 20 MG
     Route: 048
     Dates: start: 20140314
  19. ISOSORBIDE MONONITRATE. [Concomitant]
     Active Substance: ISOSORBIDE MONONITRATE
     Dosage: 120 MG
     Route: 048
     Dates: start: 20140314

REACTIONS (2)
  - Myocardial infarction [Fatal]
  - Hypotension [None]

NARRATIVE: CASE EVENT DATE: 20140512
